FAERS Safety Report 12658246 (Version 1)
Quarter: 2016Q3

REPORT INFORMATION
  Report Type: Spontaneous
  Country: US (occurrence: US)
  Receive Date: 20160817
  Receipt Date: 20160817
  Transmission Date: 20161109
  Serious: Yes (Hospitalization, Other)
  Sender: FDA-Public Use
  Company Number: US-UCBSA-2016031192

PATIENT
  Sex: Female

DRUGS (3)
  1. LEVETIRACETAM. [Suspect]
     Active Substance: LEVETIRACETAM
     Indication: CONVULSION PROPHYLAXIS
     Dosage: UNKNOWN DOSE
  2. OLANZAPINE. [Suspect]
     Active Substance: OLANZAPINE
     Indication: PSYCHOTIC DISORDER
     Dosage: UNKNOWN DOSE; AS NEEDED
  3. LORAZEPAM. [Suspect]
     Active Substance: LORAZEPAM
     Indication: PRODUCT USED FOR UNKNOWN INDICATION
     Dosage: UNKNOWN DOSE; AS NEEDED

REACTIONS (13)
  - Tachycardia [Unknown]
  - Amnesia [Unknown]
  - Tearfulness [Unknown]
  - Hallucinations, mixed [Unknown]
  - Disturbance in attention [Unknown]
  - Delusion [Unknown]
  - Confusional state [Unknown]
  - Generalised tonic-clonic seizure [Unknown]
  - Hypertension [Unknown]
  - Depressed level of consciousness [Unknown]
  - Disorientation [Unknown]
  - Abnormal behaviour [Unknown]
  - Intentional product misuse [Unknown]
